FAERS Safety Report 19017881 (Version 1)
Quarter: 2021Q1

REPORT INFORMATION
  Report Type: Report from Study
  Country: FR (occurrence: FR)
  Receive Date: 20210317
  Receipt Date: 20210317
  Transmission Date: 20210420
  Serious: Yes (Hospitalization)
  Sender: FDA-Public Use
  Company Number: FR-ROCHE-2785929

PATIENT
  Age: 64 Year
  Sex: Female
  Weight: 59 kg

DRUGS (6)
  1. CARBOPLATIN. [Suspect]
     Active Substance: CARBOPLATIN
     Indication: OVARIAN CANCER RECURRENT
     Dosage: ON 11/FEB/2021, SHE RECEIVED LAST DOSE OF CARBOPLATIN PRIOR TO ONSET OF SERIOUS ADVERSE EVENT.
     Route: 065
     Dates: start: 20200917
  2. EDUCTYL [Concomitant]
     Active Substance: POTASSIUM BITARTRATE\SODIUM BICARBONATE
     Indication: CONSTIPATION
     Dosage: 1 UNIT
     Dates: start: 20210121
  3. BICARBONATE [Concomitant]
     Active Substance: SODIUM BICARBONATE
     Dosage: 1 UNIT
     Route: 048
  4. ATEZOLIZUMAB. [Suspect]
     Active Substance: ATEZOLIZUMAB
     Indication: OVARIAN CANCER RECURRENT
     Dosage: ON 25/FEB/2021, SHE RECEIVED LAST DOSE OF ATEZOLIZUMAB PRIOR TO ONSET OF SERIOUS ADVERSE EVENT.
     Route: 042
     Dates: start: 20200917
  5. VERSATIS [Concomitant]
     Active Substance: LIDOCAINE
     Indication: PAIN
     Dosage: 1 UNIT
     Route: 048
     Dates: start: 20210121
  6. CAELYX [Suspect]
     Active Substance: DOXORUBICIN HYDROCHLORIDE
     Indication: OVARIAN CANCER RECURRENT
     Dosage: ON 11/FEB/2011, SHE RECEIVED LAST DOSE OF CAELYX PRIOR TO ONSET OF SERIOUS ADVERSE EVENT.
     Route: 065
     Dates: start: 20200917

REACTIONS (1)
  - Hydrocephalus [Not Recovered/Not Resolved]

NARRATIVE: CASE EVENT DATE: 20210305
